FAERS Safety Report 16216948 (Version 1)
Quarter: 2019Q2

REPORT INFORMATION
  Report Type: Spontaneous
  Country: US (occurrence: US)
  Receive Date: 20190315
  Receipt Date: 20190315
  Transmission Date: 20190711
  Serious: No
  Sender: FDA-Public Use
  Company Number: None

PATIENT
  Age: 68 Year
  Sex: Female

DRUGS (3)
  1. TETRABENAZINE TAB 12.5MG TAB [Suspect]
     Active Substance: TETRABENAZINE
     Route: 048
     Dates: start: 201903, end: 201903
  2. PRAMIPEXOLE. [Concomitant]
     Active Substance: PRAMIPEXOLE
  3. GABAPENTIN. [Concomitant]
     Active Substance: GABAPENTIN

REACTIONS (3)
  - Confusional state [None]
  - Balance disorder [None]
  - Fall [None]

NARRATIVE: CASE EVENT DATE: 20190315
